FAERS Safety Report 5129972-7 (Version None)
Quarter: 2006Q4

REPORT INFORMATION
  Report Type: 
  Country: None (occurrence: None)
  Receive Date: 20061013
  Receipt Date: 20061003
  Transmission Date: 20070319
  Serious: Yes (Hospitalization)
  Sender: FDA-Public Use
  Company Number: 2006122476

PATIENT
  Age: 36 Year
  Sex: Female
  Weight: 54 kg

DRUGS (2)
  1. SU-011,248 (SUNITINIB MALATE) [Suspect]
     Indication: NEOPLASM
     Dosage: 25 MG (25 MG, 1 IN 1 D), ORAL
     Route: 048
     Dates: start: 20060927, end: 20061001
  2. IRINOTECAN HCL [Suspect]
     Indication: NEOPLASM
     Dosage: 350 MG (250 MG/M*2,1 IN 1  D), INTRAVENOUS
     Route: 042
     Dates: start: 20060926, end: 20060926

REACTIONS (5)
  - ANAEMIA [None]
  - LEUKOPENIA [None]
  - NEUTROPENIA [None]
  - THROMBOCYTOPENIA [None]
  - TUMOUR HAEMORRHAGE [None]
